FAERS Safety Report 15254905 (Version 1)
Quarter: 2018Q3

REPORT INFORMATION
  Report Type: Spontaneous
  Country: ES (occurrence: ES)
  Receive Date: 20180808
  Receipt Date: 20180808
  Transmission Date: 20181010
  Serious: Yes (Hospitalization, Other)
  Sender: FDA-Public Use
  Company Number: ES-B.I. PHARMACEUTICALS,INC./RIDGEFIELD-2018-12-002682

PATIENT
  Age: 72 Year
  Sex: Female
  Weight: 71.5 kg

DRUGS (11)
  1. EUTIROX [Concomitant]
     Active Substance: LEVOTHYROXINE SODIUM
     Indication: HYPOTHYROIDISM
     Dosage: 1 TABLET EVERY DAY
     Route: 048
     Dates: start: 20150820
  2. OMEPRAZOL [Concomitant]
     Active Substance: OMEPRAZOLE
     Indication: DYSPEPSIA
     Dosage: 1 CAPSULE EVERY DAY
     Route: 048
     Dates: start: 20160818
  3. JARDIANCE [Suspect]
     Active Substance: EMPAGLIFLOZIN
     Indication: TYPE 2 DIABETES MELLITUS
     Dosage: 1 TABLET EVERY DAY
     Route: 048
     Dates: start: 20171121, end: 20180626
  4. JARDIANCE [Suspect]
     Active Substance: EMPAGLIFLOZIN
     Dosage: 1 TABLET EVERY DAY
     Route: 048
     Dates: start: 20180626
  5. EMCONCOR COR [Concomitant]
     Active Substance: BISOPROLOL
     Indication: ARRHYTHMIA
     Dosage: 1 TABLET EVERY DAY
     Route: 048
     Dates: start: 20161018
  6. NOVONORM [Concomitant]
     Active Substance: REPAGLINIDE
     Indication: TYPE 2 DIABETES MELLITUS
     Dosage: V
     Route: 048
     Dates: start: 20121119
  7. GINE CANESMED [Concomitant]
     Indication: VULVOVAGINAL CANDIDIASIS
     Dosage: 1 VAGINAL APPLICATION EVERY 8 HOURS; FORM STRENGTH: 20MG/G
     Route: 050
     Dates: start: 20180626, end: 20180705
  8. CLEXANE [Concomitant]
     Active Substance: ENOXAPARIN SODIUM
     Indication: PAIN IN EXTREMITY
     Dosage: 1 PRE?FILLED SYRINGE EVERY DAY DURING 10 DAYS; FORM STRENGTH: 4000 U.I. (40MG)/0,4ML
     Route: 058
     Dates: start: 20180703, end: 20180710
  9. FLUCONAZOL [Concomitant]
     Active Substance: FLUCONAZOLE
     Indication: GENITAL CANDIDIASIS
     Dosage: 1 CAPSULE EVERY 7 DAYS
     Route: 048
     Dates: start: 20180626, end: 20180702
  10. METAMIZOL [Concomitant]
     Active Substance: METAMIZOLE SODIUM
     Indication: PRODUCT USED FOR UNKNOWN INDICATION
     Dosage: 1 CAPSULE EVERY 8 HOURS
     Route: 048
     Dates: end: 20180706
  11. INCRESYNC [Concomitant]
     Active Substance: ALOGLIPTIN BENZOATE\PIOGLITAZONE HYDROCHLORIDE
     Indication: TYPE 2 DIABETES MELLITUS
     Dosage: 1 TABLET EVERY 12 HOURS; FORM STRENGTH: 25/30MG
     Route: 048
     Dates: start: 20170529

REACTIONS (3)
  - Pain in extremity [Recovering/Resolving]
  - Pulmonary embolism [Recovering/Resolving]
  - Genital candidiasis [Recovered/Resolved]

NARRATIVE: CASE EVENT DATE: 20180626
